FAERS Safety Report 5466183-X (Version None)
Quarter: 2007Q3

REPORT INFORMATION
  Report Type: 
  Country: None (occurrence: None)
  Receive Date: 20070924
  Receipt Date: 20070920
  Transmission Date: 20080115
  Serious: Yes (Other)
  Sender: FDA-Public Use
  Company Number: US-MERCK-0709USA03378

PATIENT
  Age: 50 Year
  Sex: Male

DRUGS (4)
  1. FOSAMAX [Suspect]
     Indication: OSTEOPOROSIS
     Route: 048
     Dates: start: 20060601
  2. PHENOBARBITAL [Concomitant]
     Route: 065
  3. TRILEPTAL [Concomitant]
     Route: 065
  4. DILANTIN [Concomitant]
     Route: 065

REACTIONS (2)
  - CONDITION AGGRAVATED [None]
  - CONVULSION [None]
